FAERS Safety Report 9853882 (Version 1)
Quarter: 2014Q1

REPORT INFORMATION
  Report Type: Spontaneous
  Country: US (occurrence: US)
  Receive Date: 20140129
  Receipt Date: 20140129
  Transmission Date: 20141002
  Serious: No
  Sender: FDA-Public Use
  Company Number: US-009507513-1401USA013240

PATIENT
  Age: 19 Year
  Sex: Female

DRUGS (1)
  1. IMPLANON [Suspect]
     Indication: CONTRACEPTION
     Dosage: UNSPECIFIED DOSE/ ONE ROD EVERY THREE YEARS
     Route: 059
     Dates: start: 201201

REACTIONS (1)
  - Menstruation irregular [Not Recovered/Not Resolved]
